FAERS Safety Report 6403527-6 (Version None)
Quarter: 2009Q4

REPORT INFORMATION
  Report Type: 
  Country: None (occurrence: None)
  Receive Date: 20091016
  Receipt Date: 20091006
  Transmission Date: 20100525
  Serious: Yes (Hospitalization, Other)
  Sender: FDA-Public Use
  Company Number: JP-PFIZER INC-2009259703

PATIENT
  Age: 70 Year

DRUGS (5)
  1. VFEND [Suspect]
     Indication: ASPERGILLOMA
     Dosage: 200 MG, 1X/DAY
     Route: 048
     Dates: start: 20090807, end: 20090821
  2. MUCOSTA [Concomitant]
     Route: 048
  3. GASTER [Concomitant]
     Route: 048
  4. MEDICON [Concomitant]
     Route: 048
  5. HOKUNALIN [Concomitant]
     Route: 062

REACTIONS (3)
  - ABASIA [None]
  - HYPONATRAEMIA [None]
  - RHABDOMYOLYSIS [None]
